FAERS Safety Report 8518837-6 (Version None)
Quarter: 2012Q3

REPORT INFORMATION
  Report Type: 
  Country: None (occurrence: None)
  Receive Date: 20120718
  Receipt Date: 20120716
  Transmission Date: 20120928
  Serious: Yes (Other)
  Sender: FDA-Public Use
  Company Number: PHEH2012US010150

PATIENT
  Sex: Female
  Weight: 92.971 kg

DRUGS (11)
  1. FLEXERIL [Concomitant]
  2. DARVOCET [Concomitant]
     Dosage: UNK, PRN
  3. ALBUTEROL [Concomitant]
  4. MIRAPEX [Concomitant]
     Indication: RESTLESS LEGS SYNDROME
     Dosage: 0.125 G, QHS
     Route: 048
  5. IBUPROFEN [Concomitant]
  6. CLARITIN [Concomitant]
  7. ATENOLOL [Concomitant]
     Indication: HYPERTENSION
     Dosage: 50 MG, DAILY
     Route: 048
  8. DIOVAN [Suspect]
     Indication: HYPERTENSION
     Dosage: 80 MG, DAILY
     Route: 048
  9. ZOLOFT [Concomitant]
  10. ADVAIR DISKUS 100/50 [Concomitant]
  11. NASONEX [Concomitant]

REACTIONS (12)
  - BREAST NEOPLASM [None]
  - HEADACHE [None]
  - BREAST CANCER [None]
  - SKIN LESION [None]
  - CHRONIC OBSTRUCTIVE PULMONARY DISEASE [None]
  - CONTUSION [None]
  - BACK PAIN [None]
  - BREAST MASS [None]
  - BENIGN BREAST NEOPLASM [None]
  - DYSPNOEA EXERTIONAL [None]
  - TENDERNESS [None]
  - ARTHRALGIA [None]
